FAERS Safety Report 8876297 (Version 1)
Quarter: 2012Q4

REPORT INFORMATION
  Report Type: 
  Country: GB (occurrence: GB)
  Receive Date: 20121023
  Receipt Date: 20121023
  Transmission Date: 20130627
  Serious: Yes (Other)
  Sender: FDA-Public Use
  Company Number: PHHY2012GB093017

PATIENT
  Age: 71 Year
  Sex: Male

DRUGS (5)
  1. IRINOTECAN [Suspect]
     Indication: COLORECTAL CANCER METASTATIC
  2. FLUOROURACIL [Suspect]
     Indication: COLORECTAL CANCER METASTATIC
  3. FOLINIC ACID [Suspect]
     Indication: COLORECTAL CANCER METASTATIC
  4. ELOXATIN [Suspect]
     Indication: COLORECTAL CANCER METASTATIC
     Route: 042
     Dates: start: 20070822, end: 20071219
  5. CAPECITABINE [Concomitant]
     Indication: NEOPLASM MALIGNANT
     Route: 048
     Dates: start: 20070822, end: 20080102

REACTIONS (3)
  - Neurotoxicity [Recovered/Resolved]
  - Areflexia [Recovered/Resolved]
  - Paraesthesia [Recovered/Resolved]
